FAERS Safety Report 6307648-8 (Version None)
Quarter: 2009Q3

REPORT INFORMATION
  Report Type: 
  Country: None (occurrence: None)
  Receive Date: 20090812
  Receipt Date: 20090812
  Transmission Date: 20100115
  Serious: Yes (Other)
  Sender: FDA-Public Use
  Company Number: None

PATIENT
  Sex: Female

DRUGS (9)
  1. REVLIMID [Suspect]
     Indication: MULTIPLE MYELOMA
     Dosage: 25MG DAILY X 21 DAYS ORAL
     Route: 048
     Dates: start: 20090707
  2. DEXAMETHASONE [Concomitant]
  3. WARFARIN [Concomitant]
  4. PROCRIT [Concomitant]
  5. HYDROCHLOROTHIAZIDE [Concomitant]
  6. MIRTAZAPINE [Concomitant]
  7. LISINOPRIL [Concomitant]
  8. ATENOLOL [Concomitant]
  9. SIMVASTATIN [Concomitant]

REACTIONS (2)
  - DIARRHOEA [None]
  - WHITE BLOOD CELL COUNT DECREASED [None]
